FAERS Safety Report 18691052 (Version 3)
Quarter: 2025Q1

REPORT INFORMATION
  Report Type: Report from Study
  Country: CA (occurrence: CA)
  Receive Date: 20210101
  Receipt Date: 20250228
  Transmission Date: 20250409
  Serious: Yes (Other)
  Sender: TAKEDA
  Company Number: CA-SHIRE-CA202006690

PATIENT
  Age: 78 Year
  Sex: Female

DRUGS (40)
  1. HUMAN IMMUNOGLOBULIN G [Suspect]
     Active Substance: HUMAN IMMUNOGLOBULIN G
     Indication: Primary immunodeficiency syndrome
  2. HUMAN IMMUNOGLOBULIN G [Suspect]
     Active Substance: HUMAN IMMUNOGLOBULIN G
     Dosage: 10 GRAM, 1/WEEK
  3. HUMAN IMMUNOGLOBULIN G [Suspect]
     Active Substance: HUMAN IMMUNOGLOBULIN G
     Dosage: 12 GRAM, 1/WEEK
  4. AMLODIPINE [Concomitant]
     Active Substance: AMLODIPINE BESYLATE
     Indication: Product used for unknown indication
  5. LEVOTHYROXINE [Concomitant]
     Active Substance: LEVOTHYROXINE
  6. CELEBREX [Concomitant]
     Active Substance: CELECOXIB
     Indication: Product used for unknown indication
  7. Dexalant [Concomitant]
     Indication: Product used for unknown indication
  8. ACTONEL [Concomitant]
     Active Substance: RISEDRONATE SODIUM
     Indication: Product used for unknown indication
  9. ASPIRIN [Concomitant]
     Active Substance: ASPIRIN
     Indication: Product used for unknown indication
     Dosage: 81 MILLIGRAM, QOD
  10. REACTINE [Concomitant]
     Indication: Product used for unknown indication
     Dosage: UNK UNK, Q1HR
  11. ZOPICLONE [Concomitant]
     Active Substance: ZOPICLONE
     Indication: Product used for unknown indication
  12. ZANTAC [Concomitant]
     Active Substance: RANITIDINE HYDROCHLORIDE
     Indication: Product used for unknown indication
  13. SODIUM CHLORIDE [Concomitant]
     Active Substance: SODIUM CHLORIDE
     Indication: Product used for unknown indication
  14. ALVESTO [Concomitant]
     Indication: Product used for unknown indication
     Dosage: UNK UNK, BID
  15. ALBUTEROL [Concomitant]
     Active Substance: ALBUTEROL
     Indication: Chronic obstructive pulmonary disease
  16. ALBUTEROL [Concomitant]
     Active Substance: ALBUTEROL
     Indication: Asthma
  17. MINERALS\VITAMINS [Concomitant]
     Active Substance: MINERALS\VITAMINS
     Indication: Product used for unknown indication
  18. IRBESARTAN [Concomitant]
     Active Substance: IRBESARTAN
     Indication: Hypertension
     Dosage: 75 MILLIGRAM, QD
  19. HYDROXYCHLOROQUINE [Concomitant]
     Active Substance: HYDROXYCHLOROQUINE
     Indication: Rheumatoid arthritis
     Dosage: 400 MILLIGRAM, QD
  20. PROLIA [Concomitant]
     Active Substance: DENOSUMAB
     Indication: Osteoporosis
  21. CURCUMIN [Concomitant]
     Active Substance: CURCUMIN
     Indication: Inflammation
     Dosage: 400 MILLIGRAM, QD
  22. VITAMIN B COMPLEX NOS [Concomitant]
     Active Substance: CYANOCOBALAMIN\PYRIDOXINE HYDROCHLORIDE\RIBOFLAVIN\SODIUM PANTOTHENATE\THIAMINE HYDROCHLORIDE\VITAMI
     Indication: Infection
     Dosage: UNK UNK, QD
  23. CALCIUM [Concomitant]
     Active Substance: CALCIUM
     Indication: Osteoporosis
  24. VITAMIN D3 [Concomitant]
     Active Substance: CHOLECALCIFEROL
     Indication: Osteoporosis
  25. MAGNESIUM CITRATE [Concomitant]
     Active Substance: MAGNESIUM CITRATE
     Indication: Muscle spasms
     Dosage: UNK UNK, QD
  26. GLUCOSAMINE [Concomitant]
     Active Substance: GLUCOSAMINE
     Indication: Arthritis
     Dosage: 400 MILLIGRAM, TID
  27. CHONDROITIN [Concomitant]
     Active Substance: CHONDROITIN
     Indication: Arthritis
     Dosage: 400 MILLIGRAM, TID
  28. CANNABIS SATIVA SUBSP. INDICA TOP [Concomitant]
     Active Substance: CANNABIS SATIVA SUBSP. INDICA TOP
     Indication: Sleep disorder
     Dosage: 500 MILLIGRAM, TID
  29. CANNABIDIOL [Concomitant]
     Active Substance: CANNABIDIOL
     Indication: Inflammation
     Dosage: 1 MILLILITER, QD
  30. MSM + GLUCOSAMINE [Concomitant]
     Indication: Arthritis
  31. DIETARY SUPPLEMENT\PROBIOTICS [Concomitant]
     Active Substance: DIETARY SUPPLEMENT\PROBIOTICS NOS
     Indication: Dyspepsia
     Dosage: UNK UNK, QD
  32. OMNARIS [Concomitant]
     Active Substance: CICLESONIDE
     Indication: Sinusitis
  33. SALINE KARE [Concomitant]
     Indication: Sinusitis
     Dosage: UNK UNK, QD
  34. LEVOFLOXACIN [Concomitant]
     Active Substance: LEVOFLOXACIN
  35. PULMICORT TURBUHALER [Concomitant]
     Active Substance: BUDESONIDE
     Indication: Sinusitis
     Dosage: UNK UNK, BID
  36. AZITHROMYCIN [Concomitant]
     Active Substance: AZITHROMYCIN
  37. AZITHROMYCIN [Concomitant]
     Active Substance: AZITHROMYCIN
     Dosage: 250 MILLIGRAM, QD
     Dates: start: 20170331
  38. PREDNISONE [Concomitant]
     Active Substance: PREDNISONE
  39. CEFUROXIME [Concomitant]
     Active Substance: CEFUROXIME
     Dosage: 500 MILLIGRAM, QD
     Dates: start: 20171030
  40. CEFUROXIME [Concomitant]
     Active Substance: CEFUROXIME

REACTIONS (5)
  - Diverticulitis [Unknown]
  - Ankle fracture [Unknown]
  - Upper respiratory tract infection [Not Recovered/Not Resolved]
  - Arthritis [Unknown]
  - Irritable bowel syndrome [Unknown]

NARRATIVE: CASE EVENT DATE: 20221101
